FAERS Safety Report 9258119 (Version 1)
Quarter: 2013Q2

REPORT INFORMATION
  Report Type: Report from Study
  Country: DK (occurrence: DE)
  Receive Date: 20130426
  Receipt Date: 20130426
  Transmission Date: 20140414
  Serious: Yes (Hospitalization)
  Sender: FDA-Public Use
  Company Number: DE-FRI-1000044594

PATIENT
  Sex: Female

DRUGS (7)
  1. CITALOPRAM [Suspect]
     Dosage: 20 MG
     Route: 048
     Dates: start: 20120814, end: 20120919
  2. CITALOPRAM [Suspect]
     Dosage: 30 MG
     Route: 048
     Dates: start: 20120920, end: 20120927
  3. CITALOPRAM [Suspect]
     Dosage: 20 MG
     Route: 048
     Dates: start: 20120928, end: 20121022
  4. CITALOPRAM [Suspect]
     Dosage: 10 MG
     Route: 048
     Dates: start: 20121023, end: 20121024
  5. MIRTAZAPIN [Concomitant]
     Dosage: 7.5 MG
     Route: 048
     Dates: start: 20120828, end: 20120830
  6. MIRTAZAPIN [Concomitant]
     Dosage: 15 MG
     Route: 048
     Dates: start: 20120831, end: 20121026
  7. L-THYROXIN [Concomitant]
     Dosage: 112.5 MICROGRAMS
     Route: 048

REACTIONS (6)
  - Suicidal ideation [Recovered/Resolved]
  - Restlessness [Recovered/Resolved]
  - Agitation [Recovered/Resolved]
  - Anxiety [Recovering/Resolving]
  - Palpitations [Recovered/Resolved]
  - Tension [Recovered/Resolved]
